FAERS Safety Report 6510792-3 (Version None)
Quarter: 2009Q4

REPORT INFORMATION
  Report Type: 
  Country: None (occurrence: None)
  Receive Date: 20091217
  Receipt Date: 20091208
  Transmission Date: 20100525
  Serious: Yes (Death)
  Sender: FDA-Public Use
  Company Number: 2009AL007655

PATIENT
  Age: 18 Year
  Sex: Female
  Weight: 88.6 kg

DRUGS (3)
  1. BUPROPION HCL [Suspect]
     Dosage: 6300 MG; X1
  2. SELEGILINE HCL [Concomitant]
  3. METHAMPHETAMINE [Concomitant]

REACTIONS (5)
  - CARDIO-RESPIRATORY ARREST [None]
  - DRUG TOXICITY [None]
  - INTENTIONAL OVERDOSE [None]
  - PULMONARY OEDEMA [None]
  - VOMITING [None]
